FAERS Safety Report 23283979 (Version 3)
Quarter: 2024Q1

REPORT INFORMATION
  Report Type: Spontaneous
  Country: US (occurrence: US)
  Receive Date: 20231211
  Receipt Date: 20240213
  Transmission Date: 20240409
  Serious: No
  Sender: FDA-Public Use
  Company Number: US-GSKCCFUS-Case-01874314_AE-104634

PATIENT
  Sex: Male

DRUGS (1)
  1. BREO ELLIPTA [Suspect]
     Active Substance: FLUTICASONE FUROATE\VILANTEROL TRIFENATATE
     Indication: Product used for unknown indication
     Dosage: 1 PUFF(S), QD 200/25MCG 30D
     Route: 055

REACTIONS (2)
  - Drug ineffective [Unknown]
  - Product complaint [Unknown]
